FAERS Safety Report 25330786 (Version 1)
Quarter: 2025Q2

REPORT INFORMATION
  Report Type: Spontaneous
  Country: DE (occurrence: DE)
  Receive Date: 20250519
  Receipt Date: 20250519
  Transmission Date: 20250716
  Serious: Yes (Hospitalization, Other)
  Sender: Kenvue
  Company Number: None

PATIENT

DRUGS (10)
  1. IBUPROFEN [Suspect]
     Active Substance: IBUPROFEN
     Indication: Back pain
     Dosage: 1-1-1 (USE OF DIFFERENT DOSAGES IN SELF-MEDICATION 400MG/600MG/800MG)
     Route: 048
     Dates: start: 20250316, end: 20250423
  2. IBUPROFEN [Suspect]
     Active Substance: IBUPROFEN
     Indication: Lumbar vertebral fracture
  3. VOLTAREN [Suspect]
     Active Substance: DICLOFENAC SODIUM
     Indication: Back pain
     Dosage: UNK UNK, THRICE A DAY (1 - 1 - 1 TABLETS)
     Route: 048
     Dates: start: 20250316, end: 20250423
  4. VOLTAREN [Suspect]
     Active Substance: DICLOFENAC SODIUM
     Indication: Lumbar vertebral fracture
  5. RAMIPRIL [Suspect]
     Active Substance: RAMIPRIL
     Indication: Hypertension
     Dosage: 5MG 1-0-1
     Route: 048
  6. RAMIPRIL [Suspect]
     Active Substance: RAMIPRIL
     Indication: Coronary artery disease
  7. AMLODIPINE BESYLATE [Suspect]
     Active Substance: AMLODIPINE BESYLATE
     Indication: Hypertension
     Dosage: 10MG 1-0-0
     Route: 048
  8. CARVEDILOL [Suspect]
     Active Substance: CARVEDILOL
     Indication: Hypertension
     Dosage: 25MG 1-0-1
     Route: 048
  9. CARVEDILOL [Suspect]
     Active Substance: CARVEDILOL
     Indication: Coronary artery disease
  10. SIMVASTATIN [Suspect]
     Active Substance: SIMVASTATIN
     Indication: Coronary artery disease
     Dosage: 40MG 0-0-1
     Route: 048

REACTIONS (3)
  - Acute kidney injury [Recovering/Resolving]
  - Hyperkalaemia [Recovering/Resolving]
  - Dehydration [Recovering/Resolving]

NARRATIVE: CASE EVENT DATE: 20250423
